FAERS Safety Report 9399052 (Version 1)
Quarter: 2013Q3

REPORT INFORMATION
  Report Type: Spontaneous
  Country: DE (occurrence: DE)
  Receive Date: 20130715
  Receipt Date: 20130715
  Transmission Date: 20140515
  Serious: Yes (Other)
  Sender: FDA-Public Use
  Company Number: DE-ROCHE-1248226

PATIENT
  Age: 76 Year
  Sex: Female
  Weight: 71 kg

DRUGS (2)
  1. ACTILYSE [Suspect]
     Indication: CEREBRAL ISCHAEMIA
     Dosage: (56.7 ML/H)
     Route: 042
  2. CAPTOHEXAL [Suspect]
     Indication: HYPERTENSION
     Route: 060

REACTIONS (3)
  - Blood pressure decreased [Recovered/Resolved]
  - Loss of consciousness [Recovered/Resolved]
  - Vomiting [Recovered/Resolved]
